FAERS Safety Report 21909727 (Version 2)
Quarter: 2023Q1

REPORT INFORMATION
  Report Type: Report from Study
  Country: IN (occurrence: IN)
  Receive Date: 20230125
  Receipt Date: 20230202
  Transmission Date: 20230418
  Serious: Yes (Other)
  Sender: FDA-Public Use
  Company Number: IN-002147023-NVSC2022IN167594

PATIENT

DRUGS (2)
  1. RUXOLITINIB [Suspect]
     Active Substance: RUXOLITINIB
     Indication: Myelofibrosis
     Dosage: 15 MG, BID
     Route: 065
     Dates: start: 20220709, end: 20230113
  2. RUXOLITINIB [Suspect]
     Active Substance: RUXOLITINIB
     Dosage: 5 MG, BID
     Route: 065
     Dates: start: 20230114

REACTIONS (9)
  - Abdominal distension [Unknown]
  - Abdominal pain [Unknown]
  - Liver disorder [Unknown]
  - Portal hypertension [Unknown]
  - Hepatic cyst [Unknown]
  - Chest pain [Unknown]
  - Therapy partial responder [Unknown]
  - Splenomegaly [Unknown]
  - Fatigue [Unknown]

NARRATIVE: CASE EVENT DATE: 20221208
